FAERS Safety Report 11059281 (Version 1)
Quarter: 2015Q2

REPORT INFORMATION
  Report Type: Spontaneous
  Country: None (occurrence: None)
  Receive Date: 20150422
  Receipt Date: 20150422
  Transmission Date: 20150821
  Serious: Yes (Other)
  Sender: FDA-Public Use
  Company Number: None

PATIENT
  Age: 22 Year
  Sex: Male
  Weight: 76.66 kg

DRUGS (1)
  1. SUBOXONE [Suspect]
     Active Substance: BUPRENORPHINE HYDROCHLORIDE\NALOXONE HYDROCHLORIDE
     Indication: DRUG ABUSE
     Dosage: 8/2 MG, 1 FILM BID, ORAL
     Route: 048
     Dates: start: 201211

REACTIONS (1)
  - Swollen tongue [None]

NARRATIVE: CASE EVENT DATE: 20121102
